FAERS Safety Report 16559772 (Version 1)
Quarter: 2019Q3

REPORT INFORMATION
  Report Type: Spontaneous
  Country: US (occurrence: US)
  Receive Date: 20190711
  Receipt Date: 20190711
  Transmission Date: 20191004
  Serious: No
  Sender: FDA-Public Use
  Company Number: US-PFIZER INC-2019294156

PATIENT
  Sex: Female

DRUGS (6)
  1. CODEINE [Suspect]
     Active Substance: CODEINE
     Dosage: UNK
  2. VICODIN [Suspect]
     Active Substance: ACETAMINOPHEN\HYDROCODONE BITARTRATE
     Dosage: UNK
  3. DULOXETINE HYDROCHLORIDE. [Suspect]
     Active Substance: DULOXETINE HYDROCHLORIDE
     Dosage: UNK
  4. HYDROCODONE BITARTRATE. [Suspect]
     Active Substance: HYDROCODONE BITARTRATE
     Dosage: UNK
  5. METAXALONE. [Suspect]
     Active Substance: METAXALONE
     Dosage: UNK
  6. BACLOFEN. [Suspect]
     Active Substance: BACLOFEN
     Dosage: UNK

REACTIONS (1)
  - Drug hypersensitivity [Unknown]
